FAERS Safety Report 9308644 (Version 2)
Quarter: 2013Q3

REPORT INFORMATION
  Report Type: Spontaneous
  Country: DE (occurrence: DE)
  Receive Date: 20130524
  Receipt Date: 20130704
  Transmission Date: 20140515
  Serious: Yes (Other)
  Sender: FDA-Public Use
  Company Number: DE-BRISTOL-MYERS SQUIBB COMPANY-18913533

PATIENT
  Age: 70 Year
  Sex: Male
  Weight: 61 kg

DRUGS (3)
  1. PACLITAXEL [Suspect]
     Indication: BRONCHIAL CARCINOMA
     Route: 042
     Dates: start: 20130103
  2. CARBOPLATIN [Suspect]
     Indication: BRONCHIAL CARCINOMA
     Dosage: WITHDRAWN
     Route: 042
     Dates: start: 20130103
  3. AVASTIN [Suspect]
     Indication: BRONCHIAL CARCINOMA
     Dosage: WITHDRAWN
     Route: 042
     Dates: start: 20130103

REACTIONS (5)
  - Pneumonitis [Recovering/Resolving]
  - Blood pressure decreased [Recovering/Resolving]
  - Hypersensitivity [Recovering/Resolving]
  - Interstitial lung disease [Recovering/Resolving]
  - Pyrexia [Recovering/Resolving]
